FAERS Safety Report 12141636 (Version 2)
Quarter: 2016Q1

REPORT INFORMATION
  Report Type: Spontaneous
  Country: US (occurrence: US)
  Receive Date: 20160303
  Receipt Date: 20160321
  Transmission Date: 20160526
  Serious: Yes (Other)
  Sender: FDA-Public Use
  Company Number: US-ENDO PHARMACEUTICALS INC.-2016-001424

PATIENT
  Age: 67 Year
  Sex: Male

DRUGS (1)
  1. XIAFLEX [Suspect]
     Active Substance: COLLAGENASE CLOSTRIDIUM HISTOLYTICUM
     Indication: DUPUYTREN^S CONTRACTURE
     Dosage: 1ST INJECTION, INTO LEFT HAND, SMALL FINGER, METACARPOPHALANGEAL JOINT
     Route: 026
     Dates: start: 201602

REACTIONS (4)
  - Thrombophlebitis superficial [Not Recovered/Not Resolved]
  - Injection site pain [Unknown]
  - Sensory disturbance [Unknown]
  - Dry skin [Unknown]

NARRATIVE: CASE EVENT DATE: 201602
